FAERS Safety Report 8125509-9 (Version None)
Quarter: 2012Q1

REPORT INFORMATION
  Report Type: 
  Country: None (occurrence: None)
  Receive Date: 20120209
  Receipt Date: 20120201
  Transmission Date: 20120608
  Serious: Yes (Other)
  Sender: FDA-Public Use
  Company Number: PHHY2012US008595

PATIENT
  Age: 3 Month
  Sex: Female

DRUGS (1)
  1. PREDNISONE [Suspect]
     Indication: AUTOIMMUNE LYMPHOPROLIFERATIVE SYNDROME

REACTIONS (4)
  - PANCYTOPENIA [None]
  - GROWTH RETARDATION [None]
  - HEPATOSPLENOMEGALY [None]
  - SECONDARY HYPERTENSION [None]
